FAERS Safety Report 22013239 (Version 1)
Quarter: 2023Q1

REPORT INFORMATION
  Report Type: Spontaneous
  Country: AU (occurrence: AU)
  Receive Date: 20230220
  Receipt Date: 20230220
  Transmission Date: 20230417
  Serious: Yes (Hospitalization)
  Sender: FDA-Public Use
  Company Number: AU-MYLANLABS-2023M1016435

PATIENT
  Age: 79 Year
  Sex: Female

DRUGS (4)
  1. CHOLESTYRAMINE [Suspect]
     Active Substance: CHOLESTYRAMINE
     Indication: Product used for unknown indication
     Dosage: 1 UNK (1 SACHET DAILY)
     Route: 065
     Dates: start: 20230202
  2. ERYTHROMYCIN [Suspect]
     Active Substance: ERYTHROMYCIN
     Indication: Product used for unknown indication
     Dosage: UNK
     Route: 065
  3. THIAMINE [Concomitant]
     Active Substance: THIAMINE
     Indication: Vitamin B1 decreased
     Dosage: 1 DOSAGE FORM
     Route: 065
     Dates: start: 20230124
  4. POTASSIUM [Concomitant]
     Active Substance: POTASSIUM
     Indication: Blood potassium decreased
     Dosage: 2 DOSAGE FORM, QD
     Route: 065
     Dates: start: 20230123

REACTIONS (3)
  - Diarrhoea [Not Recovered/Not Resolved]
  - Haemorrhoids [Not Recovered/Not Resolved]
  - Drug hypersensitivity [Not Recovered/Not Resolved]

NARRATIVE: CASE EVENT DATE: 20230210
